FAERS Safety Report 19728858 (Version 1)
Quarter: 2021Q3

REPORT INFORMATION
  Report Type: Report from Study
  Country: DE (occurrence: DE)
  Receive Date: 20210820
  Receipt Date: 20210820
  Transmission Date: 20211014
  Serious: Yes (Other)
  Sender: FDA-Public Use
  Company Number: DE-MYLANLABS-2021M1053073

PATIENT

DRUGS (1)
  1. LEVETIRACETAM MYLAN [Suspect]
     Active Substance: LEVETIRACETAM
     Indication: EPILEPSY
     Dosage: UNK

REACTIONS (6)
  - Genital infection fungal [Unknown]
  - Insomnia [Unknown]
  - Seizure [Unknown]
  - Hot flush [Unknown]
  - Cardiac failure [Unknown]
  - Hypoaesthesia [Unknown]
